FAERS Safety Report 4929618-4 (Version None)
Quarter: 2006Q1

REPORT INFORMATION
  Report Type: 
  Country: None (occurrence: None)
  Receive Date: 20060224
  Receipt Date: 20060213
  Transmission Date: 20060701
  Serious: Yes (Other)
  Sender: FDA-Public Use
  Company Number: 2006012162

PATIENT
  Age: 47 Year
  Sex: Female
  Weight: 74.8435 kg

DRUGS (7)
  1. LYRICA [Suspect]
     Indication: COMPLEX REGIONAL PAIN SYNDROME
     Dosage: 150 MG (75 MG,2 IN 1 D)
     Dates: start: 20060123, end: 20060101
  2. QUINAPRIL [Concomitant]
  3. DILTIAZEM [Concomitant]
  4. PERCOCET [Concomitant]
  5. PRILOSEC [Concomitant]
  6. XANAX [Concomitant]
  7. ACETYLSALICYLIC ACID SRT [Concomitant]

REACTIONS (11)
  - COORDINATION ABNORMAL [None]
  - CRYING [None]
  - DIFFICULTY IN WALKING [None]
  - DRY MOUTH [None]
  - FEELING ABNORMAL [None]
  - MOVEMENT DISORDER [None]
  - NIGHTMARE [None]
  - SPEECH DISORDER [None]
  - TRANSIENT ISCHAEMIC ATTACK [None]
  - TUNNEL VISION [None]
  - VISUAL DISTURBANCE [None]
